FAERS Safety Report 18297308 (Version 1)
Quarter: 2020Q3

REPORT INFORMATION
  Report Type: Report from Study
  Country: US (occurrence: US)
  Receive Date: 20200922
  Receipt Date: 20200922
  Transmission Date: 20201103
  Serious: Yes (Hospitalization)
  Sender: FDA-Public Use
  Company Number: US-EXELIXIS-CABO-20032290

PATIENT
  Age: 59 Year
  Sex: Male
  Weight: 84.35 kg

DRUGS (2)
  1. CABOMETYX [Suspect]
     Active Substance: CABOZANTINIB S-MALATE
     Dosage: 60 MG, QD
     Route: 048
  2. CABOMETYX [Suspect]
     Active Substance: CABOZANTINIB S-MALATE
     Indication: RENAL CANCER
     Dosage: 60 MG, QD
     Route: 048
     Dates: start: 20200716, end: 202008

REACTIONS (3)
  - Urine odour abnormal [Unknown]
  - Tooth disorder [Unknown]
  - Lymph gland infection [Unknown]

NARRATIVE: CASE EVENT DATE: 202008
